FAERS Safety Report 4626572-X (Version None)
Quarter: 2005Q1

REPORT INFORMATION
  Report Type: 
  Country: None (occurrence: None)
  Receive Date: 20050330
  Receipt Date: 20050316
  Transmission Date: 20050727
  Serious: Yes (Hospitalization)
  Sender: FDA-Public Use
  Company Number: USA050291259

PATIENT
  Age: 37 Year
  Sex: Male

DRUGS (1)
  1. STRATTERA [Suspect]
     Indication: ATTENTION DEFICIT/HYPERACTIVITY DISORDER
     Dosage: 40 UG/1 DAY
     Dates: start: 20050201

REACTIONS (2)
  - MANIA [None]
  - TREATMENT NONCOMPLIANCE [None]
